FAERS Safety Report 7365880-9 (Version None)
Quarter: 2011Q1

REPORT INFORMATION
  Report Type: 
  Country: None (occurrence: None)
  Receive Date: 20110322
  Receipt Date: 20110314
  Transmission Date: 20110831
  Serious: Yes (Other)
  Sender: FDA-Public Use
  Company Number: US-US-EMD SERONO, INC.-7042917

PATIENT
  Sex: Female
  Weight: 84 kg

DRUGS (3)
  1. HORMONE REPLACEMENT THERAPY [Suspect]
  2. REBIF [Suspect]
     Indication: MULTIPLE SCLEROSIS
     Route: 058
     Dates: start: 20100210
  3. RECLIPSEN [Concomitant]
     Indication: CONTRACEPTION

REACTIONS (8)
  - INJECTION SITE ERYTHEMA [None]
  - ANXIETY [None]
  - INJECTION SITE PAIN [None]
  - RETINAL VEIN OCCLUSION [None]
  - VISION BLURRED [None]
  - ARTHRALGIA [None]
  - VITAMIN D DECREASED [None]
  - BLOOD PRESSURE INCREASED [None]
